FAERS Safety Report 25860524 (Version 2)
Quarter: 2025Q4

REPORT INFORMATION
  Report Type: Spontaneous
  Country: CN (occurrence: CN)
  Receive Date: 20250929
  Receipt Date: 20251010
  Transmission Date: 20260117
  Serious: Yes (Other)
  Sender: NOVO NORDISK
  Company Number: CN-NOVOPROD-1525964

PATIENT
  Age: 51 Year
  Sex: Male
  Weight: 60 kg

DRUGS (4)
  1. INSULIN DETEMIR [Suspect]
     Active Substance: INSULIN DETEMIR
     Indication: Type 1 diabetes mellitus
     Dosage: 18 IU, QD(IN THE EVENING)
     Dates: start: 2014
  2. NOVORAPID [Suspect]
     Active Substance: INSULIN ASPART
     Indication: Type 1 diabetes mellitus
     Dosage: 8 IU, QD(2U IN THE MORNING, 3U BEFORE LUNCH AND DINNER)
     Dates: start: 2014
  3. ACARBOSE [Concomitant]
     Active Substance: ACARBOSE
     Indication: Product used for unknown indication
     Dosage: UNK(1 TABLET BEFORE EACH OF 3 MEALS DAILY)
  4. SITAGLIPTIN [Concomitant]
     Active Substance: SITAGLIPTIN
     Indication: Product used for unknown indication
     Dosage: UNK(1 TABLET TAKEN ON AN EMPTY STOMACH IN THE MORNING DAILY)

REACTIONS (8)
  - Diabetic neuropathy [Unknown]
  - Retinal disorder [Unknown]
  - Diabetic nephropathy [Unknown]
  - Hyperglycaemia [Unknown]
  - Hypoglycaemia [Unknown]
  - Blood glucose decreased [Unknown]
  - Blood glucose increased [Unknown]
  - Hypertension [Unknown]
